FAERS Safety Report 10393400 (Version 1)
Quarter: 2014Q3

REPORT INFORMATION
  Report Type: Spontaneous
  Country: US (occurrence: US)
  Receive Date: 20140819
  Receipt Date: 20140819
  Transmission Date: 20150326
  Serious: Yes (Death)
  Sender: FDA-Public Use
  Company Number: PHHY2014US102349

PATIENT
  Age: 59 Year
  Sex: Male

DRUGS (3)
  1. TIMOLOL [Suspect]
     Active Substance: TIMOLOL
     Indication: GLAUCOMA
     Dosage: UNK
  2. DEXAMETHASONE. [Concomitant]
     Active Substance: DEXAMETHASONE
  3. TIMOLOL [Suspect]
     Active Substance: TIMOLOL
     Indication: HEADACHE

REACTIONS (2)
  - Drug ineffective [Unknown]
  - Death [Fatal]
